FAERS Safety Report 6609665-7 (Version None)
Quarter: 2010Q1

REPORT INFORMATION
  Report Type: 
  Country: None (occurrence: None)
  Receive Date: 20100302
  Receipt Date: 20100216
  Transmission Date: 20100710
  Serious: Yes (Other)
  Sender: FDA-Public Use
  Company Number: US-PFIZER INC-2010021213

PATIENT
  Sex: Female
  Weight: 60.327 kg

DRUGS (12)
  1. REVATIO [Suspect]
     Indication: PULMONARY HYPERTENSION
     Dosage: FREQUENCY: 3X/DAY,
     Dates: start: 20090101
  2. LANOXIN [Suspect]
     Indication: HEART VALVE INCOMPETENCE
     Dosage: UNK
     Dates: start: 20090601
  3. TRACLEER [Concomitant]
     Indication: PULMONARY HYPERTENSION
     Dosage: UNK
  4. KLONOPIN [Concomitant]
     Dosage: UNK
  5. PROAIR HFA [Concomitant]
     Dosage: FREQUENCY: AS NEEDED,
  6. COREG [Concomitant]
     Dosage: UNK
  7. AMBIEN [Concomitant]
     Dosage: UNK
  8. NEXIUM [Concomitant]
     Dosage: UNK
  9. DEMADEX [Concomitant]
     Dosage: UNK
  10. SPIRIVA [Concomitant]
     Dosage: UNK
  11. DETROL LA [Concomitant]
     Dosage: UNK
  12. VALTREX [Concomitant]
     Dosage: UNK

REACTIONS (5)
  - CARDIAC FAILURE CONGESTIVE [None]
  - DEAFNESS [None]
  - EAR PAIN [None]
  - HEART VALVE INCOMPETENCE [None]
  - HYPOTENSION [None]
